FAERS Safety Report 5224873-8 (Version None)
Quarter: 2007Q1

REPORT INFORMATION
  Report Type: 
  Country: None (occurrence: None)
  Receive Date: 20070131
  Receipt Date: 20070117
  Transmission Date: 20070707
  Serious: Yes (Death)
  Sender: FDA-Public Use
  Company Number: US-KINGPHARMUSA00001-K200601405

PATIENT

DRUGS (3)
  1. KEMADRIN [Suspect]
     Indication: DYSTONIA
     Dosage: 20 MG, (2 DOSES, 7 HOURS APART)
     Route: 030
     Dates: start: 20060114, end: 20060114
  2. FLUPHENAZINE DECANOATE [Concomitant]
     Indication: MENTAL DISORDER
     Dosage: UNK, QMON
  3. HALOPERIDOL [Concomitant]

REACTIONS (4)
  - ASTHENIA [None]
  - CARDIO-RESPIRATORY ARREST [None]
  - DILATATION VENTRICULAR [None]
  - VOMITING [None]
